FAERS Safety Report 10977754 (Version 1)
Quarter: 2015Q2

REPORT INFORMATION
  Report Type: Spontaneous
  Country: US (occurrence: US)
  Receive Date: 20150402
  Receipt Date: 20150402
  Transmission Date: 20150821
  Serious: Yes (Congenital Anomaly, Other)
  Sender: FDA-Public Use
  Company Number: US-GLAXOSMITHKLINE-US2015GSK043796

PATIENT
  Sex: Male

DRUGS (1)
  1. ZOFRAN [Suspect]
     Active Substance: ONDANSETRON HYDROCHLORIDE
     Indication: VOMITING IN PREGNANCY
     Route: 064

REACTIONS (5)
  - Ventricular septal defect [Unknown]
  - Cardiac valve disease [Unknown]
  - Atrial septal defect [Unknown]
  - Cardiac murmur [Unknown]
  - Congenital heart valve disorder [Unknown]
